FAERS Safety Report 9091674 (Version 1)
Quarter: 2013Q1

REPORT INFORMATION
  Report Type: Report from Study
  Country: US (occurrence: US)
  Receive Date: 20130201
  Receipt Date: 20130201
  Transmission Date: 20140127
  Serious: No
  Sender: FDA-Public Use
  Company Number: US-ABBOTT-12P-163-1018664-00

PATIENT
  Sex: Female
  Weight: 65.83 kg

DRUGS (3)
  1. HUMIRA [Suspect]
     Indication: PSORIATIC ARTHROPATHY
     Route: 058
     Dates: start: 2011
  2. HUMIRA [Suspect]
     Indication: PSORIASIS
  3. BIRTH CONTROL [Concomitant]
     Indication: CONTRACEPTION

REACTIONS (1)
  - Keratitis [Not Recovered/Not Resolved]
